FAERS Safety Report 6985330-1 (Version None)
Quarter: 2010Q3

REPORT INFORMATION
  Report Type: 
  Country: None (occurrence: None)
  Receive Date: 20100915
  Receipt Date: 20100901
  Transmission Date: 20110219
  Serious: No
  Sender: FDA-Public Use
  Company Number: US-PFIZER INC-2010096500

PATIENT
  Sex: Female
  Weight: 45 kg

DRUGS (6)
  1. LYRICA [Suspect]
     Indication: NEURALGIA
     Dosage: 50 MG, 3X/DAY
     Route: 048
     Dates: start: 20100727, end: 20100727
  2. LYRICA [Suspect]
     Indication: POST HERPETIC NEURALGIA
  3. DESIPRAMINE [Concomitant]
     Dosage: UNK
  4. LIDOCAINE [Concomitant]
     Dosage: UNK
     Route: 061
  5. OXYCODONE [Concomitant]
     Dosage: UNK
  6. MORPHINE [Concomitant]
     Dosage: 0.29 MG/DAY, UNK
     Route: 037

REACTIONS (5)
  - BALANCE DISORDER [None]
  - COGNITIVE DISORDER [None]
  - CONFUSIONAL STATE [None]
  - DIZZINESS [None]
  - MENTAL STATUS CHANGES [None]
